FAERS Safety Report 7559664-6 (Version None)
Quarter: 2011Q2

REPORT INFORMATION
  Report Type: 
  Country: None (occurrence: None)
  Receive Date: 20110608
  Receipt Date: 20110523
  Transmission Date: 20111010
  Serious: Yes (Disabling, Other)
  Sender: FDA-Public Use
  Company Number: 200812743

PATIENT
  Age: 50 Year
  Sex: Female
  Weight: 68.0396 kg

DRUGS (4)
  1. ALBUTEROL INHALER (ALBUTEROL /00139501/) [Concomitant]
  2. SYMBICORT [Concomitant]
  3. CARIMUNE NF [Suspect]
     Indication: BLOOD IMMUNOGLOBULIN A DECREASED
     Dosage: (150 ML, INFUSION STARTED AT 12:30 INTRAVENOUS)
     Route: 042
     Dates: start: 20080110, end: 20080110
  4. CARIMUNE NF [Suspect]
     Indication: BLOOD IMMUNOGLOBULIN G DECREASED
     Dosage: (150 ML, INFUSION STARTED AT 12:30 INTRAVENOUS)
     Route: 042
     Dates: start: 20080110, end: 20080110

REACTIONS (27)
  - PAIN IN EXTREMITY [None]
  - NECK PAIN [None]
  - FLANK PAIN [None]
  - MICTURITION URGENCY [None]
  - DRUG RESISTANCE [None]
  - KIDNEY INFECTION [None]
  - LUNG INFECTION [None]
  - IMPAIRED WORK ABILITY [None]
  - BLOOD PRESSURE INCREASED [None]
  - ARTHRALGIA [None]
  - DISTURBANCE IN ATTENTION [None]
  - CHEST PAIN [None]
  - MALAISE [None]
  - URINE OUTPUT DECREASED [None]
  - MEMORY IMPAIRMENT [None]
  - DRUG INEFFECTIVE [None]
  - DECREASED APPETITE [None]
  - BURNING SENSATION [None]
  - URINARY TRACT INFECTION ENTEROCOCCAL [None]
  - LIVEDO RETICULARIS [None]
  - RESTLESSNESS [None]
  - ABDOMINAL DISCOMFORT [None]
  - URETHRAL HAEMORRHAGE [None]
  - WEIGHT DECREASED [None]
  - MYALGIA [None]
  - TREMOR [None]
  - BALANCE DISORDER [None]
